FAERS Safety Report 6175679-7 (Version None)
Quarter: 2009Q2

REPORT INFORMATION
  Report Type: 
  Country: None (occurrence: None)
  Receive Date: 20090427
  Receipt Date: 20080718
  Transmission Date: 20091009
  Serious: Yes (Life-Threatening)
  Sender: FDA-Public Use
  Company Number: 2008-GWUS-0343

PATIENT
  Age: 77 Year
  Sex: Male

DRUGS (7)
  1. ALDARA [Suspect]
     Indication: ACTINIC KERATOSIS
     Dosage: APPLICATION-  5XW- TOPICAL
     Route: 061
     Dates: start: 20080425, end: 20080430
  2. GLUCOPHAGE [Concomitant]
  3. VERAPAMIL [Concomitant]
  4. ZETIA [Concomitant]
  5. CESCHOL [Concomitant]
  6. MICARDIS [Concomitant]
  7. PLAVIX [Concomitant]

REACTIONS (1)
  - MYOCARDIAL INFARCTION [None]
